FAERS Safety Report 6010089-4 (Version None)
Quarter: 2008Q4

REPORT INFORMATION
  Report Type: 
  Country: None (occurrence: None)
  Receive Date: 20081218
  Receipt Date: 20081212
  Transmission Date: 20090506
  Serious: Yes (Other)
  Sender: FDA-Public Use
  Company Number: US-BAYER-200813400BCC

PATIENT
  Age: 76 Year
  Sex: Male
  Weight: 100 kg

DRUGS (15)
  1. PHILLIPS MILK OF MAGNESIA CHERRY [Suspect]
     Indication: CONSTIPATION
     Dosage: TOTAL DAILY DOSE: 45 ML
     Route: 048
     Dates: start: 20080812
  2. BUFFERIN [Concomitant]
  3. BUSPIRONE HCL [Concomitant]
  4. METOPROLOL TARTRATE [Concomitant]
  5. LISINOPRIL [Concomitant]
  6. AMIODARONE HCL [Concomitant]
  7. FUROSEMIDE [Concomitant]
  8. SPIRONOLACTONE [Concomitant]
  9. SIMVASTATIN [Concomitant]
  10. MECLIZINE [Concomitant]
  11. NITROGLYCERIN [Concomitant]
  12. LORATADINE [Concomitant]
  13. ALBUTEROL [Concomitant]
  14. FLONASE [Concomitant]
  15. GLYBURIDE [Concomitant]

REACTIONS (2)
  - BLOOD GLUCOSE INCREASED [None]
  - BLOOD PRESSURE INCREASED [None]
